FAERS Safety Report 15518295 (Version 1)
Quarter: 2018Q4

REPORT INFORMATION
  Report Type: Spontaneous
  Country: US (occurrence: US)
  Receive Date: 20181017
  Receipt Date: 20181017
  Transmission Date: 20190205
  Serious: Yes (Hospitalization, Other)
  Sender: FDA-Public Use
  Company Number: US-RISING PHARMACEUTICALS, INC.-2018RIS00414

PATIENT
  Sex: Female
  Weight: 63.49 kg

DRUGS (5)
  1. HYDROXYZINE PAMOATE. [Suspect]
     Active Substance: HYDROXYZINE PAMOATE
     Indication: SLEEP DISORDER
     Dosage: 2 UNK, 1X/DAY AT BEDTIME
     Route: 048
  2. UNSPECIFIED MEDICATIONS [Suspect]
     Active Substance: UNSPECIFIED INGREDIENT
     Dosage: UNK
  3. FLUDROCORTISONE (TEVA BARR) [Suspect]
     Active Substance: FLUDROCORTISONE
     Dosage: UNK
  4. SYNTHROID [Suspect]
     Active Substance: LEVOTHYROXINE SODIUM
  5. DICLOFENAC SODIUM DELAYED-RELEASE TABLETS USP 75MG [Suspect]
     Active Substance: DICLOFENAC SODIUM
     Indication: ARTHRITIS
     Dosage: 1 TABLETS, 2X/DAY
     Route: 048

REACTIONS (9)
  - Adrenal insufficiency [Not Recovered/Not Resolved]
  - Eye swelling [Recovered/Resolved]
  - Posture abnormal [Recovered/Resolved]
  - Low density lipoprotein increased [Unknown]
  - Autoimmune thyroiditis [Unknown]
  - Allergic reaction to excipient [Recovered/Resolved]
  - Gait inability [Recovered/Resolved]
  - Rash vesicular [Recovered/Resolved]
  - Dysstasia [Recovered/Resolved]

NARRATIVE: CASE EVENT DATE: 2015
